FAERS Safety Report 26021103 (Version 1)
Quarter: 2025Q4

REPORT INFORMATION
  Report Type: Spontaneous
  Country: CN (occurrence: CN)
  Receive Date: 20251110
  Receipt Date: 20251110
  Transmission Date: 20260118
  Serious: Yes (Hospitalization, Other)
  Sender: BAYER HEALTHCARE PHARMACEUTICALS INC.
  Company Number: CN-BAYER-2025A148412

PATIENT
  Age: 67 Year
  Sex: Female
  Weight: 65 kg

DRUGS (3)
  1. ULTRAVIST [Suspect]
     Active Substance: IOPROMIDE
     Indication: Computerised tomogram
     Dosage: 65 ML, ONCE
     Route: 042
     Dates: start: 20251105, end: 20251105
  2. ULTRAVIST [Suspect]
     Active Substance: IOPROMIDE
     Indication: Coronary artery bypass
  3. ULTRAVIST [Suspect]
     Active Substance: IOPROMIDE
     Indication: Coronary artery disease

REACTIONS (6)
  - Contrast media allergy [Not Recovered/Not Resolved]
  - Blindness [None]
  - Blood pressure decreased [None]
  - Pallor [None]
  - Hyperhidrosis [None]
  - Erythema [None]

NARRATIVE: CASE EVENT DATE: 20251105
